FAERS Safety Report 15192761 (Version 1)
Quarter: 2018Q3

REPORT INFORMATION
  Report Type: Spontaneous
  Country: ES (occurrence: ES)
  Receive Date: 20180725
  Receipt Date: 20180725
  Transmission Date: 20181010
  Serious: Yes (Other)
  Sender: FDA-Public Use
  Company Number: ES-TEVA-2018-ES-929169

PATIENT
  Age: 71 Year
  Sex: Female

DRUGS (1)
  1. QUETIAPINA [Suspect]
     Active Substance: QUETIAPINE
     Dosage: || UNIT DOSE FREQUENCY: 100 MG?MILLIGRAMS | | DOSE PER SHOT: 50 MG?MILLIGRAMS | | NUMBER OF OUTLETS
     Route: 048
     Dates: start: 20170608, end: 20171024

REACTIONS (1)
  - Hepatitis acute [Recovered/Resolved]

NARRATIVE: CASE EVENT DATE: 20170622
